FAERS Safety Report 16987118 (Version 1)
Quarter: 2019Q4

REPORT INFORMATION
  Report Type: Spontaneous
  Country: FR (occurrence: FR)
  Receive Date: 20191102
  Receipt Date: 20191102
  Transmission Date: 20200122
  Serious: Yes (Other)
  Sender: FDA-Public Use
  Company Number: FR-TEVA-2019-FR-1130501

PATIENT
  Age: 87 Year
  Sex: Female
  Weight: 66 kg

DRUGS (18)
  1. LANSOPRAZOLE MYLAN 15 MG, G?LULE GASTRO-R?SISTANTE [Concomitant]
     Dosage: 15 MG PER DAY
     Route: 048
  2. FUROSEMIDE ARROW 40 MG, COMPRIM? S?CABLE [Concomitant]
     Active Substance: FUROSEMIDE
     Dosage: SPLIT TABLET, 80 MG PER DAY
     Route: 048
     Dates: start: 20190913
  3. CLOPIDOGREL ARROW 75 MG, COMPRIM? PELLICUL? [Suspect]
     Active Substance: CLOPIDOGREL BESILATE
     Indication: PRODUCT USED FOR UNKNOWN INDICATION
     Dosage: 75 MG PER DAY
     Route: 048
  4. BISOCE 1,25 MG, COMPRIM? PELLICUL? [Concomitant]
     Active Substance: BISOPROLOL FUMARATE
     Indication: ATRIAL FIBRILLATION
     Dosage: 1.25 MG PER DAY
     Route: 048
     Dates: start: 20190916
  5. PRAVASTATINE ARROW GENERIQUES 20 MG, COMPRIM? S?CABLE [Concomitant]
     Dosage: SPLIT TABLET, 40 MG PER DAY
     Route: 048
  6. CORDARONE [Concomitant]
     Active Substance: AMIODARONE HYDROCHLORIDE
     Dosage: 400 MG PER DAY
     Route: 048
     Dates: start: 20190925
  7. ESCITALOPRAM TEVA 5 MG, COMPRIM? PELLICUL? [Suspect]
     Active Substance: ESCITALOPRAM OXALATE
     Indication: DEPRESSION
     Dosage: 5 MG PER DAY
     Route: 048
     Dates: start: 201908
  8. MIANSERINE ARROW 10 MG, COMPRIM? PELLICUL? [Concomitant]
     Dosage: 10 MG PER DAY
     Route: 048
  9. PRADAXA [Suspect]
     Active Substance: DABIGATRAN ETEXILATE MESYLATE
     Indication: ATRIAL FIBRILLATION
     Dosage: 220 MG PER DAY
     Route: 048
     Dates: start: 20190930, end: 20191004
  10. TOUJEO [Concomitant]
     Active Substance: INSULIN GLARGINE
     Dosage: 10 IU PER DAY
     Route: 058
     Dates: start: 201908
  11. GALVUS 50 MG, COMPRIM? [Concomitant]
     Active Substance: VILDAGLIPTIN
     Dosage: 50 MG PER DAY
     Route: 048
     Dates: start: 201908
  12. LEVOTHYROX 50 MICROGRAMMES, COMPRIM? S?CABLE [Concomitant]
     Active Substance: LEVOTHYROXINE SODIUM
     Dosage: SPLIT TABLET, 100 MICROGRAM PER DAY
     Route: 048
  13. UVEDOSE 100 000 UI, SOLUTION BUVABLE EN AMPOULE [Concomitant]
     Active Substance: CHOLECALCIFEROL
     Dosage: DRINKABLE SOLUTION IN AMPOULE, 1 DF, 14 DAYS
     Route: 048
  14. LERCANIDIPINE ARROW 10 MG, COMPRIM? PELLICUL? S?CABLE [Concomitant]
     Dosage: SECABLE FILMED TABLET, 10 MG PER DAY
     Route: 048
  15. METFORMINE ARROW 500 MG, COMPRIM? PELLICUL? [Concomitant]
     Active Substance: METFORMIN HYDROCHLORIDE
     Dosage: 1500 MG PER DAY
     Route: 048
  16. PREGABALINE TEVA 300 MG, G?LULE [Concomitant]
     Dosage: 900 MG PER DAY
     Route: 048
  17. MONOPROST 50 MICROGRAMMES/ML, COLLYRE EN SOLUTION EN R?CIPIENT UNIDOSE [Concomitant]
     Active Substance: LATANOPROST
     Dosage: 1 DF PER DAY, EYE DROPS IN A UNIDOSE CONTAINER SOLUTION
     Route: 047
  18. DORZOLAMIDE EG [Concomitant]
     Active Substance: DORZOLAMIDE HYDROCHLORIDE
     Dosage: 1 DF PER DAY
     Route: 047

REACTIONS (2)
  - Increased tendency to bruise [Not Recovered/Not Resolved]
  - Vascular access site haemorrhage [Recovering/Resolving]

NARRATIVE: CASE EVENT DATE: 20190930
